FAERS Safety Report 23641563 (Version 1)
Quarter: 2024Q1

REPORT INFORMATION
  Report Type: Spontaneous
  Country: US (occurrence: US)
  Receive Date: 20240318
  Receipt Date: 20240318
  Transmission Date: 20240410
  Serious: No
  Sender: FDA-Public Use
  Company Number: US-BMS-IMIDS-REMS-SI-11123631

PATIENT

DRUGS (1)
  1. LENALIDOMIDE [Suspect]
     Active Substance: LENALIDOMIDE
     Indication: Plasma cell myeloma
     Dosage: 25 MILLIGRAM, QD FOR 21 DAYS ON 7 DAYS OFF
     Route: 065

REACTIONS (9)
  - Product substitution issue [Unknown]
  - Swelling [Unknown]
  - Nausea [Unknown]
  - Malaise [Unknown]
  - Vomiting [Unknown]
  - Pruritus [Unknown]
  - Fatigue [Unknown]
  - Diarrhoea [Unknown]
  - Abdominal pain upper [Unknown]
